FAERS Safety Report 9384672 (Version 1)
Quarter: 2013Q3

REPORT INFORMATION
  Report Type: Spontaneous
  Country: US (occurrence: US)
  Receive Date: 20130705
  Receipt Date: 20130705
  Transmission Date: 20140515
  Serious: No
  Sender: FDA-Public Use
  Company Number: US-009507513-1306USA014566

PATIENT
  Sex: Female

DRUGS (2)
  1. NUVARING [Suspect]
     Indication: CONTRACEPTION
     Dosage: UNK
     Route: 067
     Dates: start: 20080114, end: 200804
  2. NUVARING [Suspect]
     Dosage: UNK
     Route: 067
     Dates: start: 20110429, end: 201108

REACTIONS (1)
  - Deep vein thrombosis [Unknown]
